FAERS Safety Report 8469809 (Version 3)
Quarter: 2012Q4

REPORT INFORMATION
  Report Type: 
  Country: US (occurrence: US)
  Receive Date: 20120321
  Receipt Date: 20121128
  Transmission Date: 20130627
  Serious: Yes (Death, Hospitalization)
  Sender: FDA-Public Use
  Company Number: PHEH2012US006116

PATIENT
  Age: 64 Year
  Sex: Male

DRUGS (1)
  1. AFINITOR [Suspect]
     Indication: RENAL CANCER
     Dosage: 10 mg, daily
     Route: 048
     Dates: start: 20120207, end: 20120314

REACTIONS (3)
  - Death [Fatal]
  - Blood count abnormal [Unknown]
  - Dermatitis contact [Unknown]
